FAERS Safety Report 9271596 (Version 4)
Quarter: 2013Q4

REPORT INFORMATION
  Report Type: Spontaneous
  Country: US (occurrence: US)
  Receive Date: 20130506
  Receipt Date: 20131107
  Transmission Date: 20140711
  Serious: Yes (Disabling)
  Sender: FDA-Public Use
  Company Number: US-PFIZER INC-2013137855

PATIENT
  Age: 56 Year
  Sex: Male
  Weight: 86.17 kg

DRUGS (1)
  1. PROTONIX [Suspect]
     Indication: GASTROOESOPHAGEAL REFLUX DISEASE
     Dosage: 40 MG, 1X/DAY
     Route: 048

REACTIONS (11)
  - Arthritis [Unknown]
  - Osteoporosis [Unknown]
  - Arthritis [Unknown]
  - Exostosis [Unknown]
  - Intervertebral disc disorder [Unknown]
  - Spinal deformity [Unknown]
  - Back pain [Unknown]
  - Depression [Unknown]
  - Emotional distress [Unknown]
  - Sleep disorder [Unknown]
  - Pain [Unknown]
